FAERS Safety Report 23938268 (Version 1)
Quarter: 2024Q2

REPORT INFORMATION
  Report Type: Spontaneous
  Country: GB (occurrence: GB)
  Receive Date: 20240604
  Receipt Date: 20240604
  Transmission Date: 20240716
  Serious: Yes (Other)
  Sender: FDA-Public Use
  Company Number: GB-ABBVIE-5473798

PATIENT
  Age: 74 Year
  Sex: Female

DRUGS (26)
  1. ALENDRONIC ACID [Suspect]
     Active Substance: ALENDRONIC ACID
     Indication: Product used for unknown indication
     Dosage: ONCE WEEKLY EACH SUNDAY
     Route: 065
  2. POLYETHYLENE GLYCOLS [Concomitant]
     Active Substance: POLYETHYLENE GLYCOLS
     Indication: Product used for unknown indication
     Dosage: SACHETS 1-2 DAILY
  3. MIRABEGRON [Concomitant]
     Active Substance: MIRABEGRON
     Indication: Product used for unknown indication
     Dosage: 25 MG
  4. CALCIUM CARBONATE\CHOLECALCIFEROL [Concomitant]
     Active Substance: CALCIUM CARBONATE\CHOLECALCIFEROL
     Indication: Product used for unknown indication
  5. BUDESONIDE\FORMOTEROL [Concomitant]
     Active Substance: BUDESONIDE\FORMOTEROL
     Indication: Product used for unknown indication
     Dosage: 160/4.5 MCG INHALER, FREQUENCY TEXT: 1 DOSE TWICE DAILY
     Route: 055
  6. SINEMET [Concomitant]
     Active Substance: CARBIDOPA\LEVODOPA
     Indication: Product used for unknown indication
     Dosage: HALF
  7. OMEPRAZOLE [Concomitant]
     Active Substance: DONEPEZIL HYDROCHLORIDE\OMEPRAZOLE\OMEPRAZOLE MAGNESIUM
     Indication: Product used for unknown indication
  8. OMEPRAZOLE [Concomitant]
     Active Substance: DONEPEZIL HYDROCHLORIDE\OMEPRAZOLE\OMEPRAZOLE MAGNESIUM
     Indication: Product used for unknown indication
     Dosage: 40 MG
  9. CARBIDOPA\LEVODOPA [Suspect]
     Active Substance: CARBIDOPA\LEVODOPA
     Indication: Parkinson^s disease
     Dosage: MD: 12.0 MLS, CR: 4.3 ML/HR, ED:2.6ML; ;
     Route: 065
     Dates: start: 2023, end: 2023
  10. CARBIDOPA\LEVODOPA [Suspect]
     Active Substance: CARBIDOPA\LEVODOPA
     Indication: Parkinson^s disease
     Dosage: CR: 4.2MLS, ED:2.5MLS, 20MG/5MG; ;
     Route: 050
     Dates: start: 2023, end: 202310
  11. CARBIDOPA\LEVODOPA [Suspect]
     Active Substance: CARBIDOPA\LEVODOPA
     Indication: Parkinson^s disease
     Dosage: MD: 12.0 CR: 4.9 ED: 2.9; ;
     Route: 050
  12. CARBIDOPA\LEVODOPA [Suspect]
     Active Substance: CARBIDOPA\LEVODOPA
     Indication: Parkinson^s disease
     Dosage: CR: 4.2MLS, ED:2.5MLS, 20MG/5MGDRUG START DATE WAS 2023; ;
     Route: 065
     Dates: end: 202310
  13. CARBIDOPA\LEVODOPA [Suspect]
     Active Substance: CARBIDOPA\LEVODOPA
     Indication: Parkinson^s disease
     Dosage: MD: 12.0 MLS, CONTINUOUS RATE 4.4MLS/HR AND EXTRA DOSE 2.7MLSDRUG START DATE AND END DATE WAS 20...
     Route: 065
  14. CARBIDOPA\LEVODOPA [Suspect]
     Active Substance: CARBIDOPA\LEVODOPA
     Indication: Parkinson^s disease
     Dosage: MORNING DOSE 12.0MLS, CR: 4.0MLS, ED:2.5MLS, 20MG/5MG; ;
     Route: 050
     Dates: start: 202310, end: 20231031
  15. CARBIDOPA\LEVODOPA [Suspect]
     Active Substance: CARBIDOPA\LEVODOPA
     Indication: Parkinson^s disease
     Dosage: CONTINUOUS RATE 4.2MLS/HR. EXTRA DOSE 2.5MLS, MORNING DOSE 12.0MLS, 20MG/5MGEND DATE - 2023; ;
     Route: 065
     Dates: start: 20231031
  16. CARBIDOPA\LEVODOPA [Suspect]
     Active Substance: CARBIDOPA\LEVODOPA
     Indication: Parkinson^s disease
     Dosage: MD: 12.0 MLS, CR: 4.3 ML/HR, ED:2.6MLDRUG START DATE AND END DATE WAS 2023; ;
     Route: 065
  17. BENSERAZIDE HYDROCHLORIDE\LEVODOPA [Concomitant]
     Active Substance: BENSERAZIDE HYDROCHLORIDE\LEVODOPA
     Indication: Product used for unknown indication
     Dosage: FREQUENCY TEXT: RARELY TAKEN
  18. SENNA [Concomitant]
     Active Substance: SENNA LEAF\SENNOSIDES\SENNOSIDES A AND B
     Indication: Product used for unknown indication
     Dosage: 7.5 MG;
  19. MONTELUKAST [Concomitant]
     Active Substance: MONTELUKAST SODIUM
     Indication: Product used for unknown indication
  20. VITAMIN B COMPLEX NOS [Concomitant]
     Active Substance: CYANOCOBALAMIN\PYRIDOXINE HYDROCHLORIDE\RIBOFLAVIN\SODIUM PANTOTHENATE\THIAMINE HYDROCHLORIDE\VITAMI
     Dosage: STRONG ONCE DAILY
  21. MELATONIN [Concomitant]
     Active Substance: MELATONIN
     Indication: Product used for unknown indication
     Dosage: 1 HOUR BEFORE BED MR
  22. RIVAROXABAN [Concomitant]
     Active Substance: RIVAROXABAN
     Indication: Product used for unknown indication
     Dosage: 20 MG
  23. DESMOPRESSIN [Concomitant]
     Active Substance: DESMOPRESSIN
     Indication: Micturition urgency
     Dosage: 10 MCG PER DOSE 2 SPRAYS, FREQUENCY TEXT: NIGHT
     Route: 045
  24. DESMOPRESSIN [Concomitant]
     Active Substance: DESMOPRESSIN
     Indication: Micturition urgency
     Dosage: 10 UG
  25. DESMOPRESSIN [Concomitant]
     Active Substance: DESMOPRESSIN
     Indication: Micturition urgency
     Dosage: 20 UG, 10 MCG PER DOSE 2 SPRAYSNASAL SPRAY FREQUENCY TEXT: NIGHT
     Route: 045
  26. CHOLECALCIFEROL [Concomitant]
     Active Substance: CHOLECALCIFEROL
     Indication: Product used for unknown indication

REACTIONS (28)
  - Parkinson^s disease [Unknown]
  - Fall [Not Recovered/Not Resolved]
  - Poor quality sleep [Unknown]
  - Drug interaction [Unknown]
  - Back pain [Unknown]
  - Head injury [Unknown]
  - Therapeutic product effect incomplete [Unknown]
  - Mobility decreased [Recovering/Resolving]
  - On and off phenomenon [Unknown]
  - Balance disorder [Unknown]
  - Weight decreased [Unknown]
  - Decreased appetite [Unknown]
  - Amnesia [Unknown]
  - Dyskinesia [Unknown]
  - Feeling abnormal [Unknown]
  - Condition aggravated [Unknown]
  - Condition aggravated [Unknown]
  - Bradykinesia [Unknown]
  - Blood pressure abnormal [Unknown]
  - Freezing phenomenon [Not Recovered/Not Resolved]
  - Contusion [Unknown]
  - Crying [Unknown]
  - Abnormal dreams [Unknown]
  - Device dislocation [Not Recovered/Not Resolved]
  - Stress [Unknown]
  - Muscle rigidity [Unknown]
  - Gait disturbance [Unknown]
  - Depressed mood [Unknown]

NARRATIVE: CASE EVENT DATE: 20231001
